FAERS Safety Report 7488565-7 (Version None)
Quarter: 2011Q2

REPORT INFORMATION
  Report Type: 
  Country: None (occurrence: None)
  Receive Date: 20110518
  Receipt Date: 20080124
  Transmission Date: 20111010
  Serious: Yes (Death, Hospitalization, Other)
  Sender: FDA-Public Use
  Company Number: US-BAYER-200812076NA

PATIENT
  Age: 81 Year
  Sex: Male
  Weight: 70 kg

DRUGS (21)
  1. CRYOPRECIPITATES [Concomitant]
     Dosage: 2 TEN PACKS
     Route: 042
     Dates: start: 20051118
  2. LISINOPRIL [Concomitant]
     Dosage: 10 MG, UNK
     Route: 048
  3. LANOXIN [Concomitant]
     Dosage: 0.125
  4. FUROSEMIDE [Concomitant]
     Dosage: 40 MG, UNK
     Route: 048
  5. TRAMADOL HCL [Concomitant]
     Dosage: 30 MG, UNK
     Route: 048
  6. ASPIRIN [Concomitant]
     Dosage: 81 MG, UNK
     Route: 048
  7. BENADRYL [Concomitant]
     Dosage: 100 MG5 MG
     Route: 042
     Dates: start: 20051116, end: 20051116
  8. VECURONIUM BROMIDE [Concomitant]
     Dosage: UNK
     Route: 042
     Dates: end: 20051116
  9. LEVOPHED [Concomitant]
     Dosage: 5 MCG
     Route: 042
     Dates: start: 20051116, end: 20051116
  10. PLASMA [Concomitant]
     Dosage: 4 U, ONCE
     Route: 042
     Dates: start: 20051118
  11. AMBIEN [Concomitant]
     Dosage: 10 MG, UNK
     Route: 048
  12. WHOLE BLOOD [Concomitant]
     Dosage: 4 U, ONCE
     Route: 042
     Dates: start: 20051118
  13. TRASYLOL [Suspect]
     Indication: TRICUSPID VALVE REPLACEMENT
  14. TRASYLOL [Suspect]
     Indication: CORONARY ARTERY BYPASS
  15. AMIODARONE HCL [Concomitant]
     Dosage: UNK
     Route: 042
     Dates: start: 20051116, end: 20051116
  16. PLATELETS [Concomitant]
     Dosage: 2 FOUR PACKS
     Route: 042
     Dates: start: 20051118
  17. VERSED [Concomitant]
     Dosage: 5 MG, UNK
     Route: 042
     Dates: start: 20051116, end: 20051116
  18. DESMOPRESSIN ACETATE [Concomitant]
     Dosage: 32 MG, UNK
     Route: 042
     Dates: start: 20051116, end: 20051116
  19. VASOPRESSIN [Concomitant]
     Dosage: UNK
     Route: 042
     Dates: start: 20051116, end: 20051116
  20. TRASYLOL [Suspect]
     Indication: MITRAL VALVE REPLACEMENT
     Dosage: 1 ML, ONCE, INITIAL TEST DOSE
     Route: 042
     Dates: start: 20051118, end: 20051118
  21. EPINEPHRINE [Concomitant]
     Dosage: UNK
     Route: 042
     Dates: start: 20051116, end: 20051116

REACTIONS (2)
  - DEATH [None]
  - RENAL FAILURE [None]
